FAERS Safety Report 9795725 (Version 1)
Quarter: 2014Q1

REPORT INFORMATION
  Report Type: Spontaneous
  Country: FR (occurrence: FR)
  Receive Date: 20140103
  Receipt Date: 20140103
  Transmission Date: 20141002
  Serious: Yes (Hospitalization)
  Sender: FDA-Public Use
  Company Number: FR-SA-2013SA135924

PATIENT
  Age: 73 Year
  Sex: Male

DRUGS (5)
  1. ARAVA [Suspect]
     Indication: PRODUCT USED FOR UNKNOWN INDICATION
     Route: 048
     Dates: start: 2011, end: 20131203
  2. CHRONO-INDOCID [Suspect]
     Indication: PRODUCT USED FOR UNKNOWN INDICATION
     Route: 048
     Dates: start: 2011, end: 20131203
  3. ATACAND [Concomitant]
     Route: 048
     Dates: end: 201209
  4. SIMVASTATIN [Concomitant]
     Route: 048
     Dates: end: 201209
  5. AMLODIPINE [Concomitant]
     Route: 048

REACTIONS (2)
  - Congestive cardiomyopathy [Not Recovered/Not Resolved]
  - Ejection fraction decreased [Not Recovered/Not Resolved]
